FAERS Safety Report 16076767 (Version 1)
Quarter: 2019Q1

REPORT INFORMATION
  Report Type: Spontaneous
  Country: GB (occurrence: GB)
  Receive Date: 20190315
  Receipt Date: 20190315
  Transmission Date: 20190418
  Serious: Yes (Other)
  Sender: FDA-Public Use
  Company Number: GB-TEVA-2019-GB-1023633

PATIENT
  Age: 8 Year
  Sex: Male
  Weight: 38 kg

DRUGS (4)
  1. BECLOMETASONE DIPROPIONATE HFA [Suspect]
     Active Substance: BECLOMETHASONE DIPROPIONATE
     Indication: ASTHMA
     Dosage: 200 MICROGRAM DAILY;
     Route: 055
  2. MONTELUKAST [Concomitant]
     Active Substance: MONTELUKAST SODIUM
     Route: 048
  3. CETIRIZINE [Concomitant]
     Active Substance: CETIRIZINE HYDROCHLORIDE
     Dosage: 5 MILLIGRAM DAILY; EVERY NIGHT
  4. SALBUTAMOL [Concomitant]
     Active Substance: ALBUTEROL
     Dosage: MODIFIED DOSE INHALER
     Route: 055

REACTIONS (2)
  - Increased appetite [Recovered/Resolved]
  - Weight increased [Recovered/Resolved]
